FAERS Safety Report 13980421 (Version 2)
Quarter: 2017Q3

REPORT INFORMATION
  Report Type: Spontaneous
  Country: IT (occurrence: IT)
  Receive Date: 20170918
  Receipt Date: 20170926
  Transmission Date: 20171128
  Serious: Yes (Hospitalization, Other)
  Sender: FDA-Public Use
  Company Number: IT-AUROBINDO-AUR-APL-2017-40377

PATIENT
  Age: 51 Year
  Sex: Female

DRUGS (4)
  1. VENLAFAXINE [Suspect]
     Active Substance: VENLAFAXINE HYDROCHLORIDE
     Indication: PRODUCT USED FOR UNKNOWN INDICATION
     Dosage: 5 DF, TOTAL
     Route: 048
     Dates: start: 20170805, end: 20170805
  2. AERIUS                             /01009701/ [Suspect]
     Active Substance: EBASTINE
     Indication: PRODUCT USED FOR UNKNOWN INDICATION
     Dosage: 3 DF, TOTAL
     Route: 048
     Dates: start: 20170805, end: 20170805
  3. QUETIAPINA SANDOZ [Suspect]
     Active Substance: QUETIAPINE FUMARATE
     Indication: PRODUCT USED FOR UNKNOWN INDICATION
     Dosage: 60 DF TOTAL
     Route: 048
  4. REACTINE                           /00884302/ [Suspect]
     Active Substance: CETIRIZINE HYDROCHLORIDE
     Indication: PRODUCT USED FOR UNKNOWN INDICATION
     Dosage: 12 DF, TOTAL
     Route: 048
     Dates: start: 20170805, end: 20170805

REACTIONS (4)
  - Drug abuse [Recovered/Resolved]
  - Coma [Recovered/Resolved]
  - Overdose [Recovered/Resolved]
  - Intentional self-injury [Recovered/Resolved]

NARRATIVE: CASE EVENT DATE: 20170805
